FAERS Safety Report 9157162 (Version 3)
Quarter: 2013Q2

REPORT INFORMATION
  Report Type: Spontaneous
  Country: IT (occurrence: IT)
  Receive Date: 20130312
  Receipt Date: 20130422
  Transmission Date: 20140414
  Serious: Yes (Death, Hospitalization, Other)
  Sender: FDA-Public Use
  Company Number: IT-PFIZER INC-2013083164

PATIENT
  Age: 85 Year
  Sex: Female

DRUGS (14)
  1. TAZOCIN [Suspect]
     Indication: URINARY TRACT INFECTION
     Dosage: 2.25 G, 3X/DAY
     Route: 042
     Dates: start: 20130221, end: 20130225
  2. ZYLORIC [Suspect]
     Indication: HYPERURICAEMIA
     Dosage: 300 MG, 1X/DAY
     Route: 048
     Dates: start: 20130201, end: 20130225
  3. OMEPRAZOLE [Concomitant]
     Dosage: 20 MG, DAILY
  4. METRONIDAZOLE [Concomitant]
     Dosage: 750 MG, DAILY
     Route: 048
     Dates: start: 20130207, end: 20130217
  5. ALDACTONE [Concomitant]
     Dosage: 25 MG, DAILY
     Route: 048
     Dates: start: 20130201, end: 20130225
  6. PARIET [Concomitant]
     Dosage: 20 MG, DAILY
     Route: 048
  7. POTASSION [Concomitant]
     Dosage: UNK
     Dates: start: 20130101, end: 20130201
  8. KCL-RETARD [Concomitant]
     Dosage: 600 MG, DAILY
     Dates: start: 20130201, end: 20130225
  9. LASIX FOR INJECTION [Concomitant]
     Dosage: 40 MG, DAILY
     Route: 042
     Dates: start: 20130219, end: 20130225
  10. LASIX [Concomitant]
     Dosage: 125 MG, DAILY
     Route: 048
     Dates: start: 20130201, end: 20130219
  11. COUMADINE [Concomitant]
     Dosage: UNK
  12. AMINOPLASMAL [Concomitant]
     Dosage: 500 ML, UNK
     Route: 042
     Dates: start: 201302
  13. ENTEROLACTIS [Concomitant]
     Dosage: 2 DF/DAY
     Dates: start: 201302
  14. EUFORTYN [Concomitant]
     Dosage: 1 DF/DAY
     Dates: start: 201302

REACTIONS (6)
  - Dermatitis bullous [Fatal]
  - Dermatitis exfoliative [Fatal]
  - Hypotension [Fatal]
  - Sepsis [Fatal]
  - Respiratory failure [Fatal]
  - Anaemia [Unknown]
